FAERS Safety Report 7803069-7 (Version None)
Quarter: 2011Q4

REPORT INFORMATION
  Report Type: 
  Country: None (occurrence: None)
  Receive Date: 20111007
  Receipt Date: 20111005
  Transmission Date: 20120403
  Serious: Yes (Other)
  Sender: FDA-Public Use
  Company Number: DE-PFIZER INC-2011173116

PATIENT
  Age: 60 Year
  Sex: Female
  Weight: 168 kg

DRUGS (5)
  1. RAMIPRIL [Concomitant]
     Indication: HYPERTENSION
     Dosage: 5 MG
  2. AMLODIPINE [Concomitant]
     Indication: HYPERTENSION
     Dosage: 5 MG DAILY
  3. VARENICLINE TARTRATE [Suspect]
     Indication: SMOKING CESSATION THERAPY
     Dosage: 0.5 MG, DAILY
     Dates: start: 20110214, end: 20110228
  4. ASPIRIN [Concomitant]
     Indication: CORONARY ARTERY DISEASE
     Dosage: 100 MG
  5. NEBIVOLOL HCL [Concomitant]
     Indication: HYPERTENSION
     Dosage: 5 MG

REACTIONS (2)
  - DEPRESSION [None]
  - LISTLESS [None]
